FAERS Safety Report 9896584 (Version 1)
Quarter: 2014Q1

REPORT INFORMATION
  Report Type: Spontaneous
  Country: US (occurrence: US)
  Receive Date: 20140213
  Receipt Date: 20140213
  Transmission Date: 20141002
  Serious: No
  Sender: FDA-Public Use
  Company Number: US-BRISTOL-MYERS SQUIBB COMPANY-19128909

PATIENT
  Age: 51 Year
  Sex: Female
  Weight: 68.93 kg

DRUGS (2)
  1. ORENCIA [Suspect]
     Indication: RHEUMATOID ARTHRITIS
     Dosage: LAST ABATACEPT DOSE WAS 4 WEEKS PRIOR TO THIS REPORT
     Route: 042
     Dates: start: 2008
  2. METHOTREXATE [Concomitant]

REACTIONS (5)
  - Stomatitis [Unknown]
  - Nasopharyngitis [Unknown]
  - Oral herpes [Unknown]
  - Dyspnoea [Unknown]
  - Eosinophil count increased [Unknown]
